FAERS Safety Report 24956577 (Version 1)
Quarter: 2025Q1

REPORT INFORMATION
  Report Type: Report from Study
  Country: US (occurrence: US)
  Receive Date: 20250211
  Receipt Date: 20250211
  Transmission Date: 20250409
  Serious: No
  Sender: ROCHE
  Company Number: US-ROCHE-10000203596

PATIENT
  Age: 37 Year
  Sex: Female
  Weight: 104 kg

DRUGS (1)
  1. OCREVUS [Suspect]
     Active Substance: OCRELIZUMAB
     Indication: Multiple sclerosis
     Route: 065

REACTIONS (24)
  - Renal impairment [Unknown]
  - Furuncle [Unknown]
  - Somnolence [Unknown]
  - COVID-19 [Unknown]
  - Pollakiuria [Unknown]
  - Central nervous system lesion [Unknown]
  - Pain [Unknown]
  - Blood thyroid stimulating hormone abnormal [Unknown]
  - Upper respiratory tract infection [Unknown]
  - Anxiety [Unknown]
  - Arthralgia [Unknown]
  - Asthma [Unknown]
  - Endometriosis [Unknown]
  - Depression [Unknown]
  - Eustachian tube dysfunction [Unknown]
  - Folliculitis [Unknown]
  - Ovarian cyst [Unknown]
  - Obesity [Unknown]
  - Polycystic ovarian syndrome [Unknown]
  - Pelvic pain [Unknown]
  - Sinusitis [Unknown]
  - Fatigue [Unknown]
  - Road traffic accident [Unknown]
  - Insomnia [Unknown]
